FAERS Safety Report 10084125 (Version 1)
Quarter: 2014Q2

REPORT INFORMATION
  Report Type: Spontaneous
  Country: IT (occurrence: None)
  Receive Date: 20140415
  Receipt Date: 20140415
  Transmission Date: 20141212
  Serious: Yes (Death)
  Sender: FDA-Public Use
  Company Number: COR_00041_2014

PATIENT
  Age: 14 Month
  Sex: Male

DRUGS (1)
  1. CARBOPLATIN [Suspect]
     Indication: BRAIN NEOPLASM
     Dosage: CUMULATIVE DOSE

REACTIONS (2)
  - Hypersensitivity [None]
  - Disease progression [None]
